FAERS Safety Report 18997580 (Version 1)
Quarter: 2021Q1

REPORT INFORMATION
  Report Type: Spontaneous
  Country: GB (occurrence: GB)
  Receive Date: 20210311
  Receipt Date: 20210311
  Transmission Date: 20210420
  Serious: Yes (Other)
  Sender: FDA-Public Use
  Company Number: GB-TORRENT-00025150

PATIENT
  Age: 18 Year
  Sex: Female
  Weight: 57 kg

DRUGS (10)
  1. CIPROFLOXACIN. [Concomitant]
     Active Substance: CIPROFLOXACIN
     Indication: PRODUCT USED FOR UNKNOWN INDICATION
     Dosage: TAKE ONE TWICE DAILY
     Dates: start: 20210118, end: 20210125
  2. DOXYCYCLINE. [Concomitant]
     Active Substance: DOXYCYCLINE
     Indication: PRODUCT USED FOR UNKNOWN INDICATION
     Dosage: TWO NOW THEN ONE DAILY
     Dates: start: 20210115, end: 20210122
  3. CLENIL MODULITE [Concomitant]
     Active Substance: BECLOMETHASONE DIPROPIONATE
     Indication: PRODUCT USED FOR UNKNOWN INDICATION
     Dosage: INHALE 2 DOSES TWICE DAILY
     Dates: start: 20201231, end: 20210219
  4. COMBISAL [Concomitant]
     Indication: PRODUCT USED FOR UNKNOWN INDICATION
     Dosage: INHALE 2 DOSES TWICE DAILY
     Dates: start: 20210201
  5. BETAMETHASONE VALERATE. [Concomitant]
     Active Substance: BETAMETHASONE VALERATE
     Indication: PRODUCT USED FOR UNKNOWN INDICATION
     Dosage: BD
     Dates: start: 20210212, end: 20210219
  6. PREDNISOLONE. [Concomitant]
     Active Substance: PREDNISOLONE
     Indication: PRODUCT USED FOR UNKNOWN INDICATION
     Dosage: EIGHT TABLETS ONCE DAILY
     Dates: start: 20210118, end: 20210123
  7. VOLUMATIC [Concomitant]
     Indication: PRODUCT USED FOR UNKNOWN INDICATION
     Dosage: USE AS DIRECTED
     Dates: start: 20210119
  8. SALAMOL [Concomitant]
     Active Substance: ALBUTEROL
     Indication: PRODUCT USED FOR UNKNOWN INDICATION
     Dosage: INHALE 2 DOSES AS NEEDED
     Dates: start: 20200728
  9. MONTELUKAST [Suspect]
     Active Substance: MONTELUKAST SODIUM
     Indication: PRODUCT USED FOR UNKNOWN INDICATION
     Dosage: NIGHT
     Dates: start: 20210224
  10. RIGEVIDON [Concomitant]
     Indication: PRODUCT USED FOR UNKNOWN INDICATION
     Dosage: TAKE ONE AS DIRECTED
     Dates: start: 20191204, end: 20210123

REACTIONS (4)
  - Rash [Recovering/Resolving]
  - Oropharyngeal pain [Recovering/Resolving]
  - Angioedema [Recovering/Resolving]
  - Lip swelling [Unknown]

NARRATIVE: CASE EVENT DATE: 20210225
